FAERS Safety Report 5425705-5 (Version None)
Quarter: 2007Q3

REPORT INFORMATION
  Report Type: 
  Country: None (occurrence: None)
  Receive Date: 20070824
  Receipt Date: 20070814
  Transmission Date: 20080115
  Serious: Yes (Other)
  Sender: FDA-Public Use
  Company Number: US-PFIZER INC-2007068738

PATIENT
  Sex: Female
  Weight: 61.2 kg

DRUGS (1)
  1. NEURONTIN [Suspect]
     Indication: PETIT MAL EPILEPSY
     Dates: start: 19970101, end: 19980101

REACTIONS (5)
  - ASTHMA [None]
  - BLADDER DISORDER [None]
  - FIBROMYALGIA [None]
  - SPINAL CORD DISORDER [None]
  - WEIGHT DECREASED [None]
